FAERS Safety Report 8986312 (Version 1)
Quarter: 2012Q4

REPORT INFORMATION
  Report Type: Spontaneous
  Country: US (occurrence: None)
  Receive Date: 20121106
  Receipt Date: 20121106
  Transmission Date: 20130627
  Serious: Yes (Hospitalization)
  Sender: FDA-Public Use
  Company Number: 2011-4577

PATIENT
  Age: 13 Year
  Sex: Male
  Weight: 94 kg

DRUGS (1)
  1. INCRELEX [Suspect]
     Indication: IDIOPATHIC SHORT STATURE
     Dates: start: 20091223, end: 20110321

REACTIONS (1)
  - Papilloedema [None]
